FAERS Safety Report 4954334-2 (Version None)
Quarter: 2006Q1

REPORT INFORMATION
  Report Type: 
  Country: None (occurrence: None)
  Receive Date: 20060327
  Receipt Date: 20051102
  Transmission Date: 20060701
  Serious: Yes (Hospitalization)
  Sender: FDA-Public Use
  Company Number: US-MERCK-0511USA00635

PATIENT
  Age: 71 Year
  Sex: Female

DRUGS (7)
  1. VIOXX [Suspect]
     Route: 048
     Dates: start: 20010409, end: 20031001
  2. VIOXX [Suspect]
     Route: 048
     Dates: start: 20040501, end: 20040906
  3. PROTONIX [Concomitant]
     Indication: GASTROOESOPHAGEAL REFLUX DISEASE
     Route: 048
  4. LEUCOVORIN [Concomitant]
     Route: 065
  5. METHOTREXATE [Concomitant]
     Route: 051
  6. PREDNISONE [Concomitant]
     Route: 065
  7. BEXTRA [Suspect]
     Route: 048

REACTIONS (15)
  - ACUTE CORONARY SYNDROME [None]
  - ACUTE MYOCARDIAL INFARCTION [None]
  - ANGINA UNSTABLE [None]
  - CHRONIC OBSTRUCTIVE PULMONARY DISEASE [None]
  - CORONARY ARTERY DISEASE [None]
  - CORONARY ARTERY STENOSIS [None]
  - HYPERLIPIDAEMIA [None]
  - HYPERTENSION [None]
  - HYPOKALAEMIA [None]
  - INJURY [None]
  - LEUKOCYTOSIS [None]
  - MYOCARDIAL ISCHAEMIA [None]
  - OEDEMA [None]
  - RHEUMATOID ARTHRITIS [None]
  - VENTRICULAR FIBRILLATION [None]
